FAERS Safety Report 25867027 (Version 2)
Quarter: 2025Q4

REPORT INFORMATION
  Report Type: Spontaneous
  Country: EU (occurrence: EU)
  Receive Date: 20251001
  Receipt Date: 20251013
  Transmission Date: 20260118
  Serious: Yes (Disabling, Other)
  Sender: ABBVIE
  Company Number: EU-ABBVIE-6481731

PATIENT
  Age: 70 Year
  Sex: Male

DRUGS (1)
  1. SKYRIZI [Suspect]
     Active Substance: RISANKIZUMAB-RZAA
     Indication: Psoriasis
     Route: 058
     Dates: start: 20230121

REACTIONS (16)
  - Cerebral infarction [Recovered/Resolved with Sequelae]
  - Arterial thrombosis [Recovered/Resolved with Sequelae]
  - Foot deformity [Unknown]
  - Arthralgia [Unknown]
  - Bladder disorder [Unknown]
  - Foot deformity [Unknown]
  - Peroneal nerve palsy [Unknown]
  - Cardiovascular disorder [Unknown]
  - Vascular encephalopathy [Unknown]
  - Cerebral artery stenosis [Unknown]
  - Carotid artery occlusion [Unknown]
  - Carotid artery thrombosis [Unknown]
  - Arteriosclerosis [Unknown]
  - Central nervous system lesion [Unknown]
  - Benign enlargement of the subarachnoid spaces [Unknown]
  - Enlarged cerebral perivascular spaces [Unknown]

NARRATIVE: CASE EVENT DATE: 20231218
